FAERS Safety Report 5625226-0 (Version None)
Quarter: 2008Q1

REPORT INFORMATION
  Report Type: 
  Country: None (occurrence: None)
  Receive Date: 20080208
  Receipt Date: 20080125
  Transmission Date: 20080703
  Serious: Yes (Death, Life-Threatening)
  Sender: FDA-Public Use
  Company Number: 200810912GDDC

PATIENT
  Age: 74 Year
  Sex: Male
  Weight: 54 kg

DRUGS (2)
  1. MITOXANTRONE [Suspect]
     Indication: PROSTATE CANCER METASTATIC
     Dosage: 18 MG Q3W IV
     Route: 042
     Dates: start: 20071103, end: 20080105
  2. PREDNISONE TAB [Suspect]
     Indication: PROSTATE CANCER METASTATIC
     Dosage: 10 MG PO
     Route: 048
     Dates: start: 20071103, end: 20080105

REACTIONS (8)
  - ARRHYTHMIA [None]
  - ATRIOVENTRICULAR BLOCK COMPLETE [None]
  - BUNDLE BRANCH BLOCK RIGHT [None]
  - CARDIAC ARREST [None]
  - HYPOXIA [None]
  - IMMUNODEFICIENCY [None]
  - LUNG INFECTION [None]
  - LUNG NEOPLASM [None]
